FAERS Safety Report 5311856-2 (Version None)
Quarter: 2007Q2

REPORT INFORMATION
  Report Type: 
  Country: None (occurrence: None)
  Receive Date: 20070427
  Receipt Date: 20070427
  Transmission Date: 20071010
  Serious: Yes (Hospitalization)
  Sender: FDA-Public Use
  Company Number: None

PATIENT
  Sex: Male
  Weight: 127 kg

DRUGS (3)
  1. FLUDARABINE PHOSPHATE [Suspect]
     Indication: LEUKAEMIA
     Dosage: 72MG  DAILY  IV DRIP
     Route: 041
     Dates: start: 20060824, end: 20060828
  2. MELOHALAN [Suspect]
     Dosage: 336MG  TIMES ONE   IV DRIP
     Route: 041
     Dates: start: 20060829, end: 20060829
  3. CAMPAHT [Concomitant]

REACTIONS (2)
  - DIARRHOEA [None]
  - PYREXIA [None]
